FAERS Safety Report 25017632 (Version 1)
Quarter: 2025Q1

REPORT INFORMATION
  Report Type: Spontaneous
  Country: US (occurrence: None)
  Receive Date: 20250226
  Receipt Date: 20250226
  Transmission Date: 20250408
  Serious: Yes (Other)
  Sender: FDA-CTU
  Company Number: None

PATIENT
  Age: 30 Year
  Sex: Male
  Weight: 99 kg

DRUGS (3)
  1. CETIRIZINE HYDROCHLORIDE [Suspect]
     Active Substance: CETIRIZINE HYDROCHLORIDE
     Indication: Seasonal allergy
     Dosage: 1 TABLET DAILY ORAL
     Route: 048
     Dates: start: 20241001, end: 20250224
  2. OMEGA 3 FROM ALGAE [Concomitant]
  3. VITAMIN D3 [Concomitant]
     Active Substance: CHOLECALCIFEROL

REACTIONS (13)
  - Dyspepsia [None]
  - Abdominal pain upper [None]
  - Dyspepsia [None]
  - Muscular weakness [None]
  - Migraine [None]
  - Fatigue [None]
  - Nausea [None]
  - Diarrhoea [None]
  - Depression [None]
  - Anxiety [None]
  - Insomnia [None]
  - Decreased appetite [None]
  - Myalgia [None]

NARRATIVE: CASE EVENT DATE: 20250225
